FAERS Safety Report 18417009 (Version 1)
Quarter: 2020Q4

REPORT INFORMATION
  Report Type: Spontaneous
  Country: FR (occurrence: FR)
  Receive Date: 20201022
  Receipt Date: 20201022
  Transmission Date: 20210114
  Serious: Yes (Death, Hospitalization)
  Sender: FDA-Public Use
  Company Number: NVSC2020FR283826

PATIENT
  Age: 71 Year
  Sex: Female
  Weight: 51 kg

DRUGS (5)
  1. PRAVASTATIN. [Concomitant]
     Active Substance: PRAVASTATIN
     Indication: PROPHYLAXIS
     Dosage: UNK
     Route: 048
     Dates: start: 20190521
  2. CERITINIB [Suspect]
     Active Substance: CERITINIB
     Indication: BRONCHIAL CARCINOMA
     Dosage: UNK
     Route: 048
     Dates: start: 20181108, end: 20190520
  3. LORLATINIB [Suspect]
     Active Substance: LORLATINIB
     Indication: BRONCHIAL CARCINOMA
     Dosage: 100 MG, QD
     Route: 048
     Dates: start: 20190521, end: 201906
  4. CRIZOTINIB [Concomitant]
     Active Substance: CRIZOTINIB
     Indication: PRODUCT USED FOR UNKNOWN INDICATION
     Dosage: 500 MG, QD (250 MG, 2X/DAY)
     Route: 065
     Dates: start: 20180506, end: 20181107
  5. FENOFIBRATE. [Concomitant]
     Active Substance: FENOFIBRATE
     Indication: PROPHYLAXIS
     Dosage: UNK
     Route: 048
     Dates: start: 20190501

REACTIONS (2)
  - Neoplasm progression [Fatal]
  - Acute respiratory failure [Fatal]

NARRATIVE: CASE EVENT DATE: 20190515
